FAERS Safety Report 8911803 (Version 1)
Quarter: 2012Q4

REPORT INFORMATION
  Report Type: 
  Country: BR (occurrence: BR)
  Receive Date: 20121116
  Receipt Date: 20121116
  Transmission Date: 20130627
  Serious: Yes (Hospitalization, Other)
  Sender: FDA-Public Use
  Company Number: BR-PFIZER INC-2012285304

PATIENT
  Sex: Male

DRUGS (1)
  1. TECTA [Suspect]
     Indication: EROSIVE OESOPHAGITIS
     Dosage: 1 DF, daily
     Route: 048
     Dates: start: 20121012, end: 201211

REACTIONS (3)
  - Pancreatitis acute [Recovered/Resolved]
  - Abdominal pain [Recovered/Resolved]
  - Gamma-glutamyltransferase increased [Recovered/Resolved]
